FAERS Safety Report 17080791 (Version 1)
Quarter: 2019Q4

REPORT INFORMATION
  Report Type: Spontaneous
  Country: US (occurrence: US)
  Receive Date: 20191029
  Receipt Date: 20191029
  Transmission Date: 20200122
  Serious: Yes (Other)
  Sender: FDA-Public Use
  Company Number: None

PATIENT
  Age: 70 Year
  Sex: Female
  Weight: 32.21 kg

DRUGS (5)
  1. ATORVASTATIN [Concomitant]
     Active Substance: ATORVASTATIN
  2. ENALAPRIL [Concomitant]
     Active Substance: ENALAPRIL
  3. METOPROLOL. [Concomitant]
     Active Substance: METOPROLOL
  4. VITAMINE D [Concomitant]
     Active Substance: CHOLECALCIFEROL
  5. NITROFURANTOIN MCR 100MG CAP [Suspect]
     Active Substance: NITROFURANTOIN
     Indication: URINARY TRACT INFECTION
     Dosage: ?          QUANTITY:14 DF DOSAGE FORM;?
     Route: 048
     Dates: start: 20190923, end: 20190929

REACTIONS (6)
  - Nausea [None]
  - Fall [None]
  - Muscular weakness [None]
  - Pain [None]
  - Dizziness [None]
  - Cough [None]

NARRATIVE: CASE EVENT DATE: 20190930
